FAERS Safety Report 5131316-1 (Version None)
Quarter: 2006Q4

REPORT INFORMATION
  Report Type: 
  Country: None (occurrence: None)
  Receive Date: 20061020
  Receipt Date: 20061011
  Transmission Date: 20070319
  Serious: Yes (Other)
  Sender: FDA-Public Use
  Company Number: PHBS2006US15883

PATIENT
  Age: 51 Year
  Sex: Female

DRUGS (1)
  1. LESCOL [Suspect]
     Indication: HYPERCHOLESTEROLAEMIA
     Dates: start: 19990101

REACTIONS (6)
  - ALANINE AMINOTRANSFERASE INCREASED [None]
  - APOPTOSIS [None]
  - ASPARTATE AMINOTRANSFERASE INCREASED [None]
  - AUTOIMMUNE HEPATITIS [None]
  - BIOPSY LIVER [None]
  - HEPATIC FIBROSIS [None]
